FAERS Safety Report 15279420 (Version 1)
Quarter: 2018Q3

REPORT INFORMATION
  Report Type: Spontaneous
  Country: FR (occurrence: FR)
  Receive Date: 20180815
  Receipt Date: 20180815
  Transmission Date: 20181010
  Serious: Yes (Hospitalization)
  Sender: FDA-Public Use
  Company Number: FR-TEVA-2018-FR-895537

PATIENT
  Age: 50 Year
  Sex: Female
  Weight: 135 kg

DRUGS (9)
  1. AMOXICILLIN. [Suspect]
     Active Substance: AMOXICILLIN
     Indication: THERAPEUTIC PROCEDURE
     Route: 048
     Dates: start: 20160602, end: 20160826
  2. LASILIX FAIBLE 20 MG, COMPRIM? [Suspect]
     Active Substance: FUROSEMIDE
     Indication: PRODUCT USED FOR UNKNOWN INDICATION
     Route: 048
     Dates: start: 20160708, end: 20160826
  3. ACIDE CLAVULANIQUE [Suspect]
     Active Substance: CLAVULANIC ACID
     Indication: THERAPEUTIC PROCEDURE
     Route: 048
     Dates: start: 20160602, end: 20160826
  4. PAROXETINE. [Concomitant]
     Active Substance: PAROXETINE
     Route: 065
  5. DECAPEPTYL [Suspect]
     Active Substance: TRIPTORELIN
     Indication: ANGIOMYXOMA
  6. ATARAX [Suspect]
     Active Substance: HYDROXYZINE HYDROCHLORIDE
     Indication: URTICARIA
     Dates: start: 201606, end: 20160826
  7. EBASTINE [Suspect]
     Active Substance: EBASTINE
     Indication: URTICARIA
     Route: 048
     Dates: start: 20160602, end: 20160820
  8. INEXIUM 40 MG, COMPRIM? GASTRO?R?SISTANT [Suspect]
     Active Substance: ESOMEPRAZOLE
     Indication: PRODUCT USED FOR UNKNOWN INDICATION
     Route: 048
     Dates: start: 20160708, end: 20160826
  9. LOSARTAN POTASSIQUE [Concomitant]
     Active Substance: LOSARTAN POTASSIUM
     Route: 065

REACTIONS (1)
  - Drug reaction with eosinophilia and systemic symptoms [Recovered/Resolved]

NARRATIVE: CASE EVENT DATE: 20160820
